FAERS Safety Report 8765585 (Version 1)
Quarter: 2012Q4

REPORT INFORMATION
  Report Type: 
  Country: CA (occurrence: CA)
  Receive Date: 20120903
  Receipt Date: 20120903
  Transmission Date: 20130627
  Serious: Yes (Other)
  Sender: FDA-Public Use
  Company Number: PHHY2012CA075691

PATIENT
  Age: 68 Year
  Sex: Female

DRUGS (3)
  1. ACLASTA [Suspect]
     Indication: OSTEITIS DEFORMANS
     Route: 042
  2. VITAMINE D3 [Concomitant]
  3. BLOOD PRESSURE PILLS [Concomitant]

REACTIONS (6)
  - Feeling abnormal [Unknown]
  - Urine output increased [Unknown]
  - Influenza like illness [Unknown]
  - Decreased appetite [Unknown]
  - Asthenia [Unknown]
  - Fatigue [Unknown]
